FAERS Safety Report 16688761 (Version 4)
Quarter: 2019Q3

REPORT INFORMATION
  Report Type: Spontaneous
  Country: AT (occurrence: AT)
  Receive Date: 20190809
  Receipt Date: 20190919
  Transmission Date: 20191004
  Serious: Yes (Death, Life-Threatening, Hospitalization, Other)
  Sender: FDA-Public Use
  Company Number: AT-009507513-1908AUT002664

PATIENT
  Age: 65 Year
  Sex: Male

DRUGS (5)
  1. ABRAXANE [Concomitant]
     Active Substance: PACLITAXEL
     Indication: NON-SMALL CELL LUNG CANCER
     Dosage: 200 MILLIGRAM
     Dates: start: 20190627, end: 20190802
  2. KEYTRUDA [Suspect]
     Active Substance: PEMBROLIZUMAB
     Indication: NON-SMALL CELL LUNG CANCER
     Dosage: 180 MILLIGRAM, 2 TIMES
     Dates: start: 20190627, end: 20190802
  3. KEYTRUDA [Suspect]
     Active Substance: PEMBROLIZUMAB
     Dosage: UNK
     Dates: start: 20190802
  4. PEMETREXED DISODIUM [Suspect]
     Active Substance: PEMETREXED DISODIUM
     Dosage: UNK
  5. CARBOPLATIN. [Concomitant]
     Active Substance: CARBOPLATIN
     Indication: NON-SMALL CELL LUNG CANCER
     Dosage: 330 MILLIGRAM
     Dates: start: 20190627, end: 20190802

REACTIONS (6)
  - Rash [Unknown]
  - Lip disorder [Unknown]
  - Toxic epidermal necrolysis [Unknown]
  - Death [Fatal]
  - Chapped lips [Unknown]
  - Adverse event [Unknown]

NARRATIVE: CASE EVENT DATE: 2019
